FAERS Safety Report 17567903 (Version 1)
Quarter: 2020Q1

REPORT INFORMATION
  Report Type: Spontaneous
  Country: US (occurrence: US)
  Receive Date: 20200320
  Receipt Date: 20200320
  Transmission Date: 20200409
  Serious: No
  Sender: FDA-Public Use
  Company Number: US-TEVA-2020-US-1205284

PATIENT
  Age: 53 Year
  Sex: Male

DRUGS (1)
  1. QVAR REDIHALER [Suspect]
     Active Substance: BECLOMETHASONE DIPROPIONATE
     Indication: ASTHMA
     Dosage: 4 DOSAGE FORMS DAILY;
     Route: 065
     Dates: start: 20200311

REACTIONS (4)
  - Drug ineffective [Unknown]
  - Dysphagia [Unknown]
  - Dyspnoea [Unknown]
  - Asthma [Unknown]
